FAERS Safety Report 9681507 (Version 1)
Quarter: 2013Q4

REPORT INFORMATION
  Report Type: Spontaneous
  Country: GB (occurrence: GB)
  Receive Date: 20131111
  Receipt Date: 20131111
  Transmission Date: 20140711
  Serious: Yes (Other)
  Sender: FDA-Public Use
  Company Number: GB-PFIZER INC-2013317324

PATIENT
  Age: 47 Year
  Sex: Male
  Weight: 85.72 kg

DRUGS (2)
  1. LYRICA [Suspect]
     Indication: NEURALGIA
     Dosage: VARIOUS 900MG DOWN TO 400MG
     Route: 048
     Dates: start: 201003, end: 201309
  2. PARACETAMOL [Concomitant]
     Dosage: UNK

REACTIONS (26)
  - Off label use [Unknown]
  - Drug dose omission [Unknown]
  - Drug dependence [Not Recovered/Not Resolved]
  - Suicidal ideation [Not Recovered/Not Resolved]
  - Nausea [Recovered/Resolved]
  - Local swelling [Recovering/Resolving]
  - Muscular weakness [Not Recovered/Not Resolved]
  - Disturbance in attention [Not Recovered/Not Resolved]
  - Diarrhoea [Recovered/Resolved]
  - Anxiety [Not Recovered/Not Resolved]
  - Fatigue [Unknown]
  - Malaise [Unknown]
  - Asthenia [Not Recovered/Not Resolved]
  - Headache [Not Recovered/Not Resolved]
  - Discomfort [Not Recovered/Not Resolved]
  - Feeling of despair [Not Recovered/Not Resolved]
  - Tremor [Unknown]
  - Hyperhidrosis [Unknown]
  - Poor quality sleep [Unknown]
  - Pain [Not Recovered/Not Resolved]
  - Neuralgia [Unknown]
  - Influenza [Unknown]
  - Viral infection [Unknown]
  - Pain in extremity [Unknown]
  - White blood cell count decreased [Unknown]
  - Withdrawal syndrome [Not Recovered/Not Resolved]
